FAERS Safety Report 18234730 (Version 1)
Quarter: 2020Q3

REPORT INFORMATION
  Report Type: Report from Study
  Country: KR (occurrence: KR)
  Receive Date: 20200904
  Receipt Date: 20200904
  Transmission Date: 20201103
  Serious: Yes (Death, Hospitalization)
  Sender: FDA-Public Use
  Company Number: KR-CELLTRION INC.-2020KR026146

PATIENT

DRUGS (7)
  1. HARNAL [Concomitant]
     Active Substance: TAMSULOSIN HYDROCHLORIDE
     Indication: DYSURIA
     Dosage: 2 DF, QD
     Route: 048
     Dates: start: 20190628
  2. OMACOR [Concomitant]
     Active Substance: OMEGA-3-ACID ETHYL ESTERS
     Indication: AORTIC STENOSIS
     Dosage: 1000 MG, QD
     Route: 048
     Dates: start: 20170118
  3. CONCOR [Concomitant]
     Active Substance: BISOPROLOL FUMARATE
     Indication: AORTIC STENOSIS
     Dosage: 2.5 MG, QD
     Route: 048
     Dates: start: 20160118
  4. HERZUMA [Suspect]
     Active Substance: TRASTUZUMAB-PKRB
     Indication: METASTATIC GASTRIC CANCER
     Dosage: 267 MG, EVERY 3 WEEKS
     Route: 042
     Dates: start: 20190605, end: 20200527
  5. LIVALO [Concomitant]
     Active Substance: PITAVASTATIN CALCIUM
     Indication: HYPERTENSION
  6. OMACOR [Concomitant]
     Active Substance: OMEGA-3-ACID ETHYL ESTERS
     Indication: HYPERTENSION
  7. LIVALO [Concomitant]
     Active Substance: PITAVASTATIN CALCIUM
     Indication: DYSLIPIDAEMIA
     Dosage: 2 MG, QD
     Route: 048
     Dates: start: 20180115

REACTIONS (1)
  - Subarachnoid haemorrhage [Fatal]

NARRATIVE: CASE EVENT DATE: 20200617
